FAERS Safety Report 21365339 (Version 1)
Quarter: 2022Q3

REPORT INFORMATION
  Report Type: Spontaneous
  Country: US (occurrence: None)
  Receive Date: 20220922
  Receipt Date: 20220922
  Transmission Date: 20221026
  Serious: Yes (Hospitalization)
  Sender: FDA-Public Use
  Company Number: None

PATIENT
  Age: 30 Year
  Sex: Female
  Weight: 56 kg

DRUGS (7)
  1. CYCLOPHOSPHAMIDE [Suspect]
     Active Substance: CYCLOPHOSPHAMIDE
     Dosage: OTHER QUANTITY : 1000 UNIT;?
     Dates: end: 20220830
  2. CYTARABINE [Suspect]
     Active Substance: CYTARABINE
     Dates: end: 20220909
  3. DEXAMETHASONE [Suspect]
     Active Substance: DEXAMETHASONE
     Dates: end: 20220830
  4. DOXORUBICIN HYDROCHLORIDE [Suspect]
     Active Substance: DOXORUBICIN HYDROCHLORIDE
     Dates: end: 20220815
  5. METHOTREXATE [Suspect]
     Active Substance: METHOTREXATE
     Dates: end: 20220913
  6. ONCASPAR [Suspect]
     Active Substance: PEGASPARGASE
     Dosage: OTHER QUANTITY : 4000 UNIT;?
     Dates: end: 20220913
  7. RITUXIMAB [Suspect]
     Active Substance: RITUXIMAB
     Dates: end: 20220913

REACTIONS (10)
  - White blood cell count decreased [None]
  - Diarrhoea [None]
  - Chills [None]
  - Chills [None]
  - Body temperature increased [None]
  - Headache [None]
  - Insomnia [None]
  - Treatment delayed [None]
  - Infection [None]
  - Febrile neutropenia [None]

NARRATIVE: CASE EVENT DATE: 20220920
